FAERS Safety Report 10141592 (Version 2)
Quarter: 2014Q2

REPORT INFORMATION
  Report Type: Spontaneous
  Country: ZA (occurrence: ZA)
  Receive Date: 20140429
  Receipt Date: 20140507
  Transmission Date: 20141212
  Serious: Yes (Death)
  Sender: FDA-Public Use
  Company Number: ZA-GLAXOSMITHKLINE-B0989563A

PATIENT
  Sex: Female
  Weight: 63 kg

DRUGS (2)
  1. VOTRIENT [Suspect]
     Indication: PRODUCT USED FOR UNKNOWN INDICATION
     Dosage: 800MG PER DAY
     Route: 065
  2. CYTOTOXICS [Concomitant]

REACTIONS (3)
  - Death [Fatal]
  - Drug interaction [Unknown]
  - Off label use [Unknown]
